FAERS Safety Report 16519168 (Version 1)
Quarter: 2019Q3

REPORT INFORMATION
  Report Type: Spontaneous
  Country: US (occurrence: US)
  Receive Date: 20190702
  Receipt Date: 20190702
  Transmission Date: 20191004
  Serious: No
  Sender: FDA-Public Use
  Company Number: US-009507513-1810USA009958

PATIENT
  Sex: Female

DRUGS (8)
  1. INTRON A [Suspect]
     Active Substance: INTERFERON ALFA-2B
     Dosage: INJECTION 3 MILLILITER X 8, QW (PER WEEK), STRENGTH: 25 MU
     Route: 058
  2. LISINOPRIL. [Concomitant]
     Active Substance: LISINOPRIL
  3. SIMVASTATIN. [Concomitant]
     Active Substance: SIMVASTATIN
  4. IMIQUIMOD. [Concomitant]
     Active Substance: IMIQUIMOD
  5. PANTOPRAZOLE [Concomitant]
     Active Substance: PANTOPRAZOLE
  6. PREMARIN VAGINAL [Concomitant]
     Active Substance: ESTROGENS, CONJUGATED
  7. SERTRALINE HYDROCHLORIDE. [Concomitant]
     Active Substance: SERTRALINE HYDROCHLORIDE
  8. LEVOTHYROXINE SODIUM. [Concomitant]
     Active Substance: LEVOTHYROXINE SODIUM

REACTIONS (3)
  - Fatigue [Unknown]
  - Product dose omission [Unknown]
  - Nausea [Unknown]
